FAERS Safety Report 16119304 (Version 1)
Quarter: 2019Q1

REPORT INFORMATION
  Report Type: Spontaneous
  Country: US (occurrence: US)
  Receive Date: 20190326
  Receipt Date: 20190326
  Transmission Date: 20190418
  Serious: No
  Sender: FDA-Public Use
  Company Number: US-AVEDRO-AVE-2019-0007-AE

PATIENT
  Age: 53 Year

DRUGS (2)
  1. PHOTREXA VISCOUS [Suspect]
     Active Substance: RIBOFLAVIN 5^-PHOSPHATE SODIUM
     Indication: PRODUCT USED FOR UNKNOWN INDICATION
     Route: 047
     Dates: start: 20181221, end: 20181221
  2. KXL SYSTEM [Suspect]
     Active Substance: DEVICE
     Indication: PRODUCT USED FOR UNKNOWN INDICATION
     Route: 047
     Dates: start: 20181221, end: 20181221

REACTIONS (3)
  - Corneal opacity [Unknown]
  - Visual impairment [Unknown]
  - Keratitis [Unknown]

NARRATIVE: CASE EVENT DATE: 2018
